FAERS Safety Report 22536446 (Version 1)
Quarter: 2023Q2

REPORT INFORMATION
  Report Type: Spontaneous
  Country: ID (occurrence: ID)
  Receive Date: 20230608
  Receipt Date: 20230608
  Transmission Date: 20230722
  Serious: Yes (Other)
  Sender: FDA-Public Use
  Company Number: ID-PFIZER INC-202300213272

PATIENT
  Age: 65 Year
  Sex: Female

DRUGS (2)
  1. DEXMEDETOMIDINE HYDROCHLORIDE [Suspect]
     Active Substance: DEXMEDETOMIDINE HYDROCHLORIDE
     Indication: Anaesthesia
     Dosage: 0.5 UG/KG (15 ML)
  2. BUPIVACAINE [Suspect]
     Active Substance: BUPIVACAINE
     Indication: Epidural anaesthesia
     Dosage: UNK
     Route: 008

REACTIONS (4)
  - Procedural pain [Unknown]
  - Blood pressure fluctuation [Unknown]
  - Heart rate abnormal [Unknown]
  - Off label use [Unknown]
